FAERS Safety Report 5007797-0 (Version None)
Quarter: 2006Q2

REPORT INFORMATION
  Report Type: 
  Country: None (occurrence: None)
  Receive Date: 20060522
  Receipt Date: 20060510
  Transmission Date: 20061013
  Serious: Yes (Other)
  Sender: FDA-Public Use
  Company Number: ES-GLAXOSMITHKLINE-B0424038A

PATIENT
  Age: 48 Year
  Sex: Female

DRUGS (1)
  1. ZYNTABAC [Suspect]
     Indication: SMOKING CESSATION THERAPY
     Route: 065

REACTIONS (2)
  - BUNDLE BRANCH BLOCK LEFT [None]
  - CHEST PAIN [None]
